FAERS Safety Report 8990893 (Version 1)
Quarter: 2012Q4

REPORT INFORMATION
  Report Type: Spontaneous
  Country: US (occurrence: None)
  Receive Date: 20121226
  Receipt Date: 20121226
  Transmission Date: 20130627
  Serious: No
  Sender: FDA-Public Use
  Company Number: None

PATIENT
  Age: 57 Year
  Sex: Male
  Weight: 97.52 kg

DRUGS (2)
  1. ATORVASTATIN [Suspect]
     Indication: CORONARY ARTERY DISEASE
     Dosage: 20 mg QD PO
     Route: 048
     Dates: start: 201205, end: 201209
  2. ATORVASTATIN [Suspect]
     Indication: DYSLIPIDEMIA
     Dosage: 20 mg QD PO
     Route: 048
     Dates: start: 201205, end: 201209

REACTIONS (2)
  - Product substitution issue [None]
  - Myalgia [None]
